FAERS Safety Report 9049989 (Version 1)
Quarter: 2013Q1

REPORT INFORMATION
  Report Type: Spontaneous
  Country: US (occurrence: US)
  Receive Date: 20130205
  Receipt Date: 20130205
  Transmission Date: 20140127
  Serious: Yes (Life-Threatening, Hospitalization, Other)
  Sender: FDA-Public Use
  Company Number: US-ROXANE LABORATORIES, INC.-2013-RO-00179RO

PATIENT
  Age: 51 Year
  Sex: Female

DRUGS (3)
  1. METHOTREXATE [Suspect]
     Indication: JUVENILE IDIOPATHIC ARTHRITIS
  2. PREDNISONE [Suspect]
     Indication: JUVENILE IDIOPATHIC ARTHRITIS
     Dosage: 5 MG
  3. FILGRASTIM [Suspect]
     Indication: NEUTROPENIA

REACTIONS (5)
  - Immune reconstitution inflammatory syndrome [Unknown]
  - Pneumocystis jirovecii pneumonia [Recovered/Resolved]
  - Respiratory failure [Recovered/Resolved]
  - Acute respiratory distress syndrome [Recovered/Resolved]
  - Neutropenia [Recovered/Resolved]
